FAERS Safety Report 16563644 (Version 1)
Quarter: 2019Q3

REPORT INFORMATION
  Report Type: Spontaneous
  Country: US (occurrence: US)
  Receive Date: 20190712
  Receipt Date: 20190712
  Transmission Date: 20191004
  Serious: Yes (Other)
  Sender: FDA-Public Use
  Company Number: US-ROCHE-2352484

PATIENT
  Sex: Male

DRUGS (3)
  1. LUCENTIS [Suspect]
     Active Substance: RANIBIZUMAB
     Dosage: INJECTION INTO RIGHT EYE
     Route: 065
     Dates: start: 20170601
  2. LUCENTIS [Suspect]
     Active Substance: RANIBIZUMAB
     Indication: PRODUCT USED FOR UNKNOWN INDICATION
     Dosage: INJECTION INTO RIGHT EYE
     Route: 065
     Dates: start: 20170518
  3. EYLEA [Suspect]
     Active Substance: AFLIBERCEPT
     Indication: PRODUCT USED FOR UNKNOWN INDICATION
     Dosage: INJECTION INTO RIGHT EYE
     Route: 065
     Dates: start: 20170613

REACTIONS (2)
  - Endophthalmitis [Unknown]
  - Blindness unilateral [Unknown]
